FAERS Safety Report 8029999-1 (Version None)
Quarter: 2012Q1

REPORT INFORMATION
  Report Type: 
  Country: None (occurrence: None)
  Receive Date: 20120105
  Receipt Date: 20111214
  Transmission Date: 20120608
  Serious: Yes (Other)
  Sender: FDA-Public Use
  Company Number: 20110864

PATIENT
  Age: 73 Year
  Sex: Female

DRUGS (9)
  1. PEPCID [Concomitant]
  2. DETROL [Concomitant]
  3. PLAVIX [Suspect]
  4. VITAMIN D [Concomitant]
  5. ZOCOR [Concomitant]
  6. CYANOCOBALAMIN [Suspect]
     Dosage: 1 CC MONTHLY
     Route: 030
     Dates: start: 20100101, end: 20111201
  7. ASPIRIN [Concomitant]
  8. POTASSIUM CHLORIDE [Concomitant]
  9. SYNTHROID [Suspect]

REACTIONS (3)
  - BALANCE DISORDER [None]
  - RED BLOOD CELL COUNT ABNORMAL [None]
  - DYSPNOEA [None]
